FAERS Safety Report 9995691 (Version 1)
Quarter: 2014Q1

REPORT INFORMATION
  Report Type: Spontaneous
  Country: US (occurrence: US)
  Receive Date: 20140311
  Receipt Date: 20140311
  Transmission Date: 20141002
  Serious: No
  Sender: FDA-Public Use
  Company Number: US-GALDERMA-US13003238

PATIENT
  Age: 39 Year
  Sex: Male

DRUGS (5)
  1. TRI-LUMA CREAM (FLUOCINOLONE ACETONIDE 0.01%, HYDROQUINONE 4%, TRETINO [Suspect]
     Indication: CHLOASMA
     Route: 061
     Dates: start: 20130530, end: 20131013
  2. RETIN A [Concomitant]
     Indication: ACNE
     Route: 061
  3. YES TO CUCUMBERS SOOTHING SENSITIVE SKIN GENTLE MILK CLEANSER [Concomitant]
     Indication: THERAPEUTIC SKIN CARE TOPICAL
     Route: 061
  4. MARIO BEDESCU KERATOPLAST CLEANSING LOTION [Concomitant]
     Indication: THERAPEUTIC SKIN CARE TOPICAL
     Route: 061
  5. NEUTROGENA HEALTHY DEFENSE SPF 30 [Concomitant]
     Indication: PROPHYLAXIS AGAINST SOLAR RADIATION
     Route: 061

REACTIONS (3)
  - Skin irritation [Not Recovered/Not Resolved]
  - Drug ineffective [Not Recovered/Not Resolved]
  - Intentional drug misuse [Recovered/Resolved]
